FAERS Safety Report 18377959 (Version 2)
Quarter: 2020Q4

REPORT INFORMATION
  Report Type: Spontaneous
  Country: US (occurrence: US)
  Receive Date: 20201013
  Receipt Date: 20201014
  Transmission Date: 20210114
  Serious: Yes (Other)
  Sender: FDA-Public Use
  Company Number: US-PFIZER INC-2020394522

PATIENT
  Sex: Male

DRUGS (3)
  1. IBUPROFEN. [Concomitant]
     Active Substance: IBUPROFEN
     Dosage: 1600 MG
     Dates: start: 20201012
  2. VIAGRA [Suspect]
     Active Substance: SILDENAFIL CITRATE
     Dosage: UNK
  3. MOTRIN [Interacting]
     Active Substance: IBUPROFEN
     Dosage: UNK

REACTIONS (6)
  - Ejaculation disorder [Unknown]
  - Urinary retention [Unknown]
  - Urinary incontinence [Unknown]
  - Drug interaction [Unknown]
  - Erection increased [Unknown]
  - Dysuria [Unknown]
